FAERS Safety Report 17977552 (Version 2)
Quarter: 2020Q3

REPORT INFORMATION
  Report Type: Report from Study
  Country: DE (occurrence: DE)
  Receive Date: 20200703
  Receipt Date: 20200826
  Transmission Date: 20201103
  Serious: Yes (Hospitalization)
  Sender: FDA-Public Use
  Company Number: DE-ACTELION-A-CH2020-201524

PATIENT
  Age: 48 Year
  Sex: Female
  Weight: 84 kg

DRUGS (26)
  1. OPSUMIT [Suspect]
     Active Substance: MACITENTAN
     Indication: PULMONARY ARTERIAL HYPERTENSION
     Dosage: 10 MG, QD
     Route: 048
     Dates: start: 20190807
  2. REMODULIN [Suspect]
     Active Substance: TREPROSTINIL
     Dosage: 10 NG, QD
     Route: 058
     Dates: start: 20191218, end: 20191219
  3. ADEMPAS [Concomitant]
     Active Substance: RIOCIGUAT
     Dosage: 4.5 MG, QD
     Dates: start: 20190822, end: 20190829
  4. ULUNAR [Concomitant]
     Indication: ASTHMA
     Dosage: UNK
     Route: 055
  5. PREDNISON [Concomitant]
     Active Substance: PREDNISONE
     Dosage: UNK
     Dates: start: 2019, end: 2019
  6. LERCANIDIPINE [Concomitant]
     Active Substance: LERCANIDIPINE
     Indication: HYPOTENSION
     Dosage: UNK
     Route: 048
     Dates: start: 201811, end: 20191218
  7. UPTRAVI [Suspect]
     Active Substance: SELEXIPAG
     Dosage: UNK
     Route: 048
     Dates: start: 20200226
  8. REMODULIN [Suspect]
     Active Substance: TREPROSTINIL
     Dosage: 15 NG, QD
     Route: 058
     Dates: start: 20191220, end: 20200106
  9. REMODULIN [Suspect]
     Active Substance: TREPROSTINIL
     Dosage: 19.2 NG, QD
     Route: 058
     Dates: start: 20200205, end: 20200212
  10. ADEMPAS [Concomitant]
     Active Substance: RIOCIGUAT
     Dosage: 6 MG, QD
     Dates: start: 20190829, end: 20190919
  11. ADEMPAS [Concomitant]
     Active Substance: RIOCIGUAT
     Dosage: 3 MG, QD
     Dates: start: 20190807, end: 20190822
  12. SPIRIVA [Concomitant]
     Active Substance: TIOTROPIUM BROMIDE MONOHYDRATE
     Indication: ASTHMA
     Dosage: UNK
     Route: 055
     Dates: start: 201811
  13. ADEMPAS [Concomitant]
     Active Substance: RIOCIGUAT
     Indication: PULMONARY ARTERIAL HYPERTENSION
     Dosage: 7.5 MG, QD
     Route: 048
     Dates: start: 20190919
  14. CLEXANE [Concomitant]
     Active Substance: ENOXAPARIN SODIUM
     Indication: PROPHYLAXIS
     Dosage: UNK
     Route: 058
     Dates: start: 20191218, end: 20191229
  15. L?THYROXIN [Concomitant]
     Active Substance: LEVOTHYROXINE SODIUM
     Indication: HYPOTHYROIDISM
     Dosage: UNK
     Route: 048
  16. KALINOR RETARD P [Concomitant]
     Active Substance: POTASSIUM CHLORIDE
     Indication: PROPHYLAXIS
     Dosage: UNK, PRN
     Route: 048
     Dates: start: 20191224
  17. NEXIUM [Concomitant]
     Active Substance: ESOMEPRAZOLE MAGNESIUM
     Indication: PROPHYLAXIS
     Dosage: UNK
     Route: 048
     Dates: start: 20191225, end: 20191230
  18. UPTRAVI [Suspect]
     Active Substance: SELEXIPAG
     Indication: PULMONARY ARTERIAL HYPERTENSION
     Dosage: 800 MCG, QD
     Route: 048
     Dates: start: 20200301, end: 20200303
  19. REMODULIN [Suspect]
     Active Substance: TREPROSTINIL
     Dosage: 15.8 NG, QD
     Route: 058
     Dates: start: 20200106, end: 20200122
  20. REMODULIN [Suspect]
     Active Substance: TREPROSTINIL
     Dosage: 22.2 NG, QD
     Route: 048
     Dates: start: 20200212, end: 202002
  21. KALINOR RETARD P [Concomitant]
     Active Substance: POTASSIUM CHLORIDE
     Dosage: UNK
     Route: 042
     Dates: start: 20191218, end: 20191224
  22. CLEXANE [Concomitant]
     Active Substance: ENOXAPARIN SODIUM
     Dosage: UNK
     Route: 058
     Dates: start: 20190806, end: 20190807
  23. REMODULIN [Suspect]
     Active Substance: TREPROSTINIL
     Indication: PULMONARY ARTERIAL HYPERTENSION
     Dosage: 17.4 NG, QD
     Route: 058
     Dates: start: 20200122, end: 20200205
  24. REMODULIN [Suspect]
     Active Substance: TREPROSTINIL
     Dosage: 13 NG, QD
     Route: 058
     Dates: start: 20191219, end: 20191220
  25. POTASSIUM CHLORIDE. [Concomitant]
     Active Substance: POTASSIUM CHLORIDE
     Indication: PROPHYLAXIS
     Dosage: UNK
     Route: 042
     Dates: start: 20191218, end: 20191224
  26. SALBUTAMOL [Concomitant]
     Active Substance: ALBUTEROL
     Indication: ASTHMA
     Dosage: UNK
     Route: 055
     Dates: start: 201811

REACTIONS (14)
  - Injection site pruritus [Recovered/Resolved]
  - Injection site infection [Recovered/Resolved]
  - Headache [Recovered/Resolved]
  - Concomitant disease aggravated [Unknown]
  - Injection site pain [Recovered/Resolved]
  - Hypoaesthesia [Recovered/Resolved]
  - Toothache [Recovered/Resolved]
  - Left ventricular hypertrophy [Unknown]
  - Diarrhoea [Recovered/Resolved]
  - Nausea [Recovered/Resolved]
  - Swelling face [Recovered/Resolved]
  - Abdominal pain [Recovered/Resolved]
  - Catheterisation cardiac [Unknown]
  - Flatulence [Recovered/Resolved]

NARRATIVE: CASE EVENT DATE: 20191206
